FAERS Safety Report 17909864 (Version 2)
Quarter: 2020Q3

REPORT INFORMATION
  Report Type: Report from Study
  Country: DE (occurrence: DE)
  Receive Date: 20200617
  Receipt Date: 20200717
  Transmission Date: 20201103
  Serious: Yes (Other)
  Sender: FDA-Public Use
  Company Number: DE-ANIPHARMA-2020-DE-000027

PATIENT
  Sex: Female
  Weight: 73 kg

DRUGS (1)
  1. ANASTROZOLE. [Suspect]
     Active Substance: ANASTROZOLE
     Indication: BREAST CANCER METASTATIC
     Dosage: 1 MG DAILY
     Route: 048
     Dates: start: 20180720

REACTIONS (2)
  - Neutrophil count decreased [Unknown]
  - Infection [Unknown]

NARRATIVE: CASE EVENT DATE: 201912
